FAERS Safety Report 19378196 (Version 2)
Quarter: 2021Q2

REPORT INFORMATION
  Report Type: Report from Study
  Country: None (occurrence: PR)
  Receive Date: 20210605
  Receipt Date: 20210618
  Transmission Date: 20210717
  Serious: Yes (Other)
  Sender: FDA-Public Use
  Company Number: PR-ABBVIE-21K-131-3934668-00

PATIENT
  Age: 83 Year
  Sex: Female

DRUGS (1)
  1. RINVOQ [Suspect]
     Active Substance: UPADACITINIB
     Indication: RHEUMATOID ARTHRITIS
     Route: 048
     Dates: start: 20200203

REACTIONS (3)
  - Livedo reticularis [Recovered/Resolved]
  - Venous occlusion [Unknown]
  - Gait disturbance [Recovered/Resolved]
